FAERS Safety Report 14504658 (Version 3)
Quarter: 2019Q2

REPORT INFORMATION
  Report Type: Report from Study
  Country: US (occurrence: US)
  Receive Date: 20180208
  Receipt Date: 20190625
  Transmission Date: 20190711
  Serious: Yes (Hospitalization, Other)
  Sender: FDA-Public Use
  Company Number: PHEH2018US004498

PATIENT
  Sex: Male

DRUGS (1)
  1. GLEEVEC [Suspect]
     Active Substance: IMATINIB MESYLATE
     Indication: PRODUCT USED FOR UNKNOWN INDICATION
     Dosage: 400 MG, UNK
     Route: 048

REACTIONS (7)
  - Arthritis [Unknown]
  - Neoplasm malignant [Unknown]
  - Myocardial infarction [Unknown]
  - Intracranial aneurysm [Unknown]
  - Type 2 diabetes mellitus [Unknown]
  - Memory impairment [Unknown]
  - Poliomyelitis [Unknown]
